FAERS Safety Report 14529944 (Version 1)
Quarter: 2018Q1

REPORT INFORMATION
  Report Type: Spontaneous
  Country: US (occurrence: US)
  Receive Date: 20180214
  Receipt Date: 20180214
  Transmission Date: 20180509
  Serious: No
  Sender: FDA-Public Use
  Company Number: US-IGSA-SR10005328

PATIENT
  Age: 83 Year
  Sex: Female

DRUGS (11)
  1. ACIPHEX [Concomitant]
     Active Substance: RABEPRAZOLE SODIUM
  2. ALBUTEROL                          /00139501/ [Concomitant]
     Active Substance: ALBUTEROL
  3. FISH OIL [Concomitant]
     Active Substance: FISH OIL
  4. PROLASTIN-C [Suspect]
     Active Substance: .ALPHA.1-PROTEINASE INHIBITOR HUMAN
     Indication: ALPHA-1 ANTI-TRYPSIN DEFICIENCY
     Dosage: 60 MG/KG, Q.WK.
     Route: 042
     Dates: start: 20170526
  5. PROLASTIN-C [Suspect]
     Active Substance: .ALPHA.1-PROTEINASE INHIBITOR HUMAN
     Dosage: 60 MG/KG, Q.WK.
     Route: 042
     Dates: start: 20171006
  6. BRILINTA [Concomitant]
     Active Substance: TICAGRELOR
  7. PROLASTIN-C [Suspect]
     Active Substance: .ALPHA.1-PROTEINASE INHIBITOR HUMAN
     Dosage: 60 MG/KG, Q.WK.
     Route: 042
     Dates: start: 20170929
  8. ASA [Concomitant]
     Active Substance: ASPIRIN
     Dosage: 81 MG, UNKNOWN
     Route: 065
  9. HYDROCORTISONE. [Concomitant]
     Active Substance: HYDROCORTISONE
  10. PANTOPRAZOLE [Suspect]
     Active Substance: PANTOPRAZOLE
     Indication: ADVERSE DRUG REACTION
     Dosage: UNK
     Dates: start: 201709
  11. LEVOTHYROXINE. [Concomitant]
     Active Substance: LEVOTHYROXINE

REACTIONS (2)
  - Dyspepsia [Recovered/Resolved]
  - Decreased appetite [Recovered/Resolved]

NARRATIVE: CASE EVENT DATE: 201706
